FAERS Safety Report 19470935 (Version 1)
Quarter: 2021Q2

REPORT INFORMATION
  Report Type: Spontaneous
  Country: US (occurrence: US)
  Receive Date: 20210629
  Receipt Date: 20210629
  Transmission Date: 20210717
  Serious: Yes (Other)
  Sender: FDA-Public Use
  Company Number: US-ALLERGAN-2117541US

PATIENT
  Age: 70 Year
  Sex: Female

DRUGS (3)
  1. COMBIGAN [Concomitant]
     Active Substance: BRIMONIDINE TARTRATE\TIMOLOL MALEATE
     Indication: INTRAOCULAR PRESSURE INCREASED
  2. COMBIGAN [Concomitant]
     Active Substance: BRIMONIDINE TARTRATE\TIMOLOL MALEATE
     Indication: OPEN ANGLE GLAUCOMA
     Dosage: UNK
     Dates: start: 20210414
  3. DURYSTA [Suspect]
     Active Substance: BIMATOPROST
     Indication: OPEN ANGLE GLAUCOMA
     Dosage: 10 ?G, SINGLE
     Route: 031
     Dates: start: 20210218, end: 20210526

REACTIONS (3)
  - Ocular hyperaemia [Unknown]
  - Device physical property issue [Unknown]
  - Intraocular pressure increased [Not Recovered/Not Resolved]

NARRATIVE: CASE EVENT DATE: 20210218
